FAERS Safety Report 9901148 (Version 2)
Quarter: 2014Q2

REPORT INFORMATION
  Report Type: Spontaneous
  Country: US (occurrence: US)
  Receive Date: 20140217
  Receipt Date: 20140407
  Transmission Date: 20141212
  Serious: No
  Sender: FDA-Public Use
  Company Number: US-PFIZER INC-2014044744

PATIENT
  Age: 40 Year
  Sex: Female
  Weight: 104.31 kg

DRUGS (3)
  1. GABAPENTIN [Suspect]
     Indication: NEURALGIA
     Dosage: UNK
  2. GABAPENTIN [Suspect]
     Indication: PARAESTHESIA
  3. FENTANYL [Concomitant]
     Dosage: UNK

REACTIONS (3)
  - Fibromyalgia [Unknown]
  - Spondylitis [Unknown]
  - Intervertebral disc degeneration [Unknown]
